FAERS Safety Report 17642180 (Version 1)
Quarter: 2020Q2

REPORT INFORMATION
  Report Type: Spontaneous
  Country: US (occurrence: US)
  Receive Date: 20200408
  Receipt Date: 20200408
  Transmission Date: 20200713
  Serious: Yes (Other)
  Sender: FDA-Public Use
  Company Number: US-JNJFOC-20200342842

PATIENT
  Sex: Male
  Weight: 227 kg

DRUGS (1)
  1. TYLENOL EXTRA STRENGTH [Suspect]
     Active Substance: ACETAMINOPHEN
     Indication: PAIN
     Dosage: 6 GRAMS, MAYBE MORE PER DAY UNSPECIFIED
     Route: 048

REACTIONS (2)
  - Liver function test increased [Recovering/Resolving]
  - Intentional overdose [Unknown]
